FAERS Safety Report 7937201-1 (Version None)
Quarter: 2011Q4

REPORT INFORMATION
  Report Type: 
  Country: None (occurrence: None)
  Receive Date: 20111123
  Receipt Date: 20111115
  Transmission Date: 20120403
  Serious: Yes (Life-Threatening, Hospitalization)
  Sender: FDA-Public Use
  Company Number: CA-GLAXOSMITHKLINE-A0931010A

PATIENT
  Sex: Female
  Weight: 104.1 kg

DRUGS (9)
  1. SPIRIVA [Concomitant]
     Dosage: 1CAP AT NIGHT
  2. CELEBREX [Concomitant]
  3. EZETIMIBE [Concomitant]
  4. CYMBALTA [Concomitant]
  5. ADVAIR DISKUS 100/50 [Suspect]
     Indication: ASTHMA
     Dosage: 1PUFF TWICE PER DAY
     Route: 055
     Dates: start: 20110128
  6. METFORMIN [Concomitant]
  7. HYDROCHLOROTHIAZIDE [Concomitant]
  8. LIPITOR [Concomitant]
  9. AVAPRO [Concomitant]

REACTIONS (18)
  - BACK PAIN [None]
  - MEMORY IMPAIRMENT [None]
  - DYSPNOEA [None]
  - SPINAL DISORDER [None]
  - DYSPHAGIA [None]
  - CYST [None]
  - FALL [None]
  - NECK INJURY [None]
  - BACK INJURY [None]
  - NEOPLASM MALIGNANT [None]
  - OROPHARYNGEAL PAIN [None]
  - COUGH [None]
  - BACK DISORDER [None]
  - PAIN IN EXTREMITY [None]
  - ARTHRALGIA [None]
  - BALANCE DISORDER [None]
  - PHARYNGITIS [None]
  - EPIGLOTTITIS [None]
